FAERS Safety Report 10006095 (Version 1)
Quarter: 2014Q1

REPORT INFORMATION
  Report Type: Spontaneous
  Country: TR (occurrence: TR)
  Receive Date: 20140313
  Receipt Date: 20140313
  Transmission Date: 20141002
  Serious: Yes (Hospitalization)
  Sender: FDA-Public Use
  Company Number: TR-ROXANE LABORATORIES, INC.-2014-RO-00373RO

PATIENT
  Age: 7 Year
  Sex: Female

DRUGS (2)
  1. OXCARBAZEPINE [Suspect]
     Indication: EPILEPSY
     Route: 065
  2. CLONAZEPAM [Suspect]
     Indication: EPILEPSY
     Route: 065

REACTIONS (1)
  - Drug-induced liver injury [Recovered/Resolved]
